FAERS Safety Report 13985984 (Version 1)
Quarter: 2017Q3

REPORT INFORMATION
  Report Type: Spontaneous
  Country: US (occurrence: US)
  Receive Date: 20170919
  Receipt Date: 20170919
  Transmission Date: 20171128
  Serious: Yes (Hospitalization, Disabling, Other)
  Sender: FDA-Public Use
  Company Number: None

PATIENT
  Age: 46 Year
  Sex: Female

DRUGS (1)
  1. LUPRON [Suspect]
     Active Substance: LEUPROLIDE ACETATE
     Indication: UTERINE LEIOMYOMA
     Route: 058
     Dates: start: 20061101, end: 20061201

REACTIONS (15)
  - Vomiting [None]
  - Pain [None]
  - Cardiac disorder [None]
  - Poor peripheral circulation [None]
  - Depression [None]
  - Multiple sclerosis [None]
  - Systemic lupus erythematosus [None]
  - Haemorrhage [None]
  - Malaise [None]
  - Embolism [None]
  - Social avoidant behaviour [None]
  - Impaired work ability [None]
  - Anaemia [None]
  - Visual impairment [None]
  - Amnesia [None]

NARRATIVE: CASE EVENT DATE: 20061101
